FAERS Safety Report 21540178 (Version 1)
Quarter: 2022Q4

REPORT INFORMATION
  Report Type: Spontaneous
  Country: CZ (occurrence: CZ)
  Receive Date: 20221102
  Receipt Date: 20221102
  Transmission Date: 20230113
  Serious: Yes (Hospitalization)
  Sender: FDA-Public Use
  Company Number: CZ-BAXTER-2022BAX018058

PATIENT
  Age: 70 Year
  Sex: Male
  Weight: 68 kg

DRUGS (25)
  1. DOXORUBICIN [Suspect]
     Active Substance: DOXORUBICIN
     Indication: Diffuse large B-cell lymphoma stage III
     Route: 065
     Dates: start: 20220516, end: 20220722
  2. DOXORUBICIN [Suspect]
     Active Substance: DOXORUBICIN
     Route: 065
     Dates: start: 20220902
  3. VINCRISTINE [Suspect]
     Active Substance: VINCRISTINE
     Indication: Diffuse large B-cell lymphoma stage III
     Route: 065
     Dates: start: 20220516, end: 20220722
  4. VINCRISTINE [Suspect]
     Active Substance: VINCRISTINE
     Route: 065
     Dates: start: 20220902
  5. RITUXIMAB [Suspect]
     Active Substance: RITUXIMAB
     Indication: Diffuse large B-cell lymphoma stage III
     Route: 041
     Dates: start: 20220516, end: 20220722
  6. RITUXIMAB [Suspect]
     Active Substance: RITUXIMAB
     Route: 041
     Dates: start: 20220902
  7. CYCLOPHOSPHAMIDE [Suspect]
     Active Substance: CYCLOPHOSPHAMIDE
     Indication: Diffuse large B-cell lymphoma stage III
     Route: 065
     Dates: start: 20220516, end: 20220722
  8. CYCLOPHOSPHAMIDE [Suspect]
     Active Substance: CYCLOPHOSPHAMIDE
     Route: 065
     Dates: start: 20220902
  9. SOLU-MEDROL [Suspect]
     Active Substance: METHYLPREDNISOLONE SODIUM SUCCINATE
     Indication: Diffuse large B-cell lymphoma stage III
     Route: 048
     Dates: start: 20220722, end: 20220722
  10. SOLU-MEDROL [Suspect]
     Active Substance: METHYLPREDNISOLONE SODIUM SUCCINATE
     Route: 048
     Dates: start: 20220516, end: 20220516
  11. SOLU-MEDROL [Suspect]
     Active Substance: METHYLPREDNISOLONE SODIUM SUCCINATE
     Route: 048
     Dates: start: 20220902
  12. PREDNISONE [Suspect]
     Active Substance: PREDNISONE
     Indication: Diffuse large B-cell lymphoma stage III
     Route: 048
     Dates: start: 20220804, end: 20220807
  13. PREDNISONE [Suspect]
     Active Substance: PREDNISONE
     Route: 048
     Dates: start: 20220611, end: 20220614
  14. PREDNISONE [Suspect]
     Active Substance: PREDNISONE
     Route: 048
     Dates: start: 20220517, end: 20220520
  15. PREDNISONE [Suspect]
     Active Substance: PREDNISONE
     Route: 048
     Dates: start: 20220903
  16. PREDNISONE [Suspect]
     Active Substance: PREDNISONE
     Route: 048
     Dates: start: 20220723, end: 20220725
  17. TONANDA [Concomitant]
     Indication: Product used for unknown indication
     Dosage: UNK
     Dates: start: 2015
  18. DIGOXIN [Concomitant]
     Active Substance: DIGOXIN
     Indication: Product used for unknown indication
  19. AMINOPHYLLINE [Concomitant]
     Active Substance: AMINOPHYLLINE
     Indication: Product used for unknown indication
     Dosage: UNK
     Dates: start: 2015
  20. CONTROLOC [Concomitant]
     Active Substance: PANTOPRAZOLE SODIUM
     Indication: Product used for unknown indication
     Dosage: UNK
     Dates: start: 20220424
  21. PARALEN (CZECH REPUBLIC) [Concomitant]
     Indication: Product used for unknown indication
     Dosage: 1000 MG
     Dates: start: 20220523, end: 20220523
  22. AMOXICILLIN TRIHYDRATE [Concomitant]
     Active Substance: AMOXICILLIN
     Indication: Product used for unknown indication
     Dosage: UNK
     Dates: start: 20220501
  23. ACLIDINIUM BROMIDE\FORMOTEROL FUMARATE [Concomitant]
     Active Substance: ACLIDINIUM BROMIDE\FORMOTEROL FUMARATE
     Indication: Product used for unknown indication
     Dosage: UNK
     Dates: start: 20220424
  24. BISULEPIN [Concomitant]
     Active Substance: BISULEPIN
     Indication: Product used for unknown indication
     Dates: start: 20220523, end: 20220804
  25. METFORMIN HYDROCHLORIDE [Concomitant]
     Active Substance: METFORMIN HYDROCHLORIDE
     Indication: Product used for unknown indication
     Dosage: UNK
     Dates: start: 2015

REACTIONS (4)
  - Oedema [Unknown]
  - Arthritis bacterial [Recovered/Resolved]
  - Arthralgia [Recovered/Resolved]
  - Joint swelling [Recovered/Resolved]

NARRATIVE: CASE EVENT DATE: 20220812
